FAERS Safety Report 5331752-4 (Version None)
Quarter: 2007Q2

REPORT INFORMATION
  Report Type: 
  Country: None (occurrence: None)
  Receive Date: 20070517
  Receipt Date: 20070509
  Transmission Date: 20071010
  Serious: Yes (Hospitalization)
  Sender: FDA-Public Use
  Company Number: 2005BI003420

PATIENT
  Age: 49 Year
  Sex: Female
  Weight: 57.4 kg

DRUGS (6)
  1. AVONEX [Suspect]
     Indication: MULTIPLE SCLEROSIS
     Dosage: 30 UG; QW; IM
     Route: 030
     Dates: start: 19981102
  2. PREMARIN [Concomitant]
  3. MULTI-VITAMIN [Concomitant]
  4. CALCIUM WITH VITAMIN D [Concomitant]
  5. BACLOFEN [Concomitant]
  6. NORTRIPTYLINE HCL [Concomitant]

REACTIONS (9)
  - ARTHRALGIA [None]
  - BLOOD IRON DECREASED [None]
  - BLOOD POTASSIUM DECREASED [None]
  - CONTUSION [None]
  - FALL [None]
  - HAEMOGLOBIN DECREASED [None]
  - HAEMORRHAGE [None]
  - POST PROCEDURAL COMPLICATION [None]
  - SUBDURAL HAEMATOMA [None]
